FAERS Safety Report 13978343 (Version 2)
Quarter: 2018Q3

REPORT INFORMATION
  Report Type: Spontaneous
  Country: US (occurrence: US)
  Receive Date: 20170914
  Receipt Date: 20180913
  Transmission Date: 20181010
  Serious: Yes (Other)
  Sender: FDA-Public Use
  Company Number: US-ASTELLAS-2017US033863

PATIENT
  Age: 86 Year
  Sex: Male

DRUGS (19)
  1. DULCOLAX (BISACODYL) [Concomitant]
     Active Substance: BISACODYL
     Indication: CONSTIPATION
     Route: 048
  2. PRINIVIL [Concomitant]
     Active Substance: LISINOPRIL
     Indication: PRODUCT USED FOR UNKNOWN INDICATION
     Route: 048
  3. ZESTRIL [Concomitant]
     Active Substance: LISINOPRIL
     Indication: PRODUCT USED FOR UNKNOWN INDICATION
     Route: 048
  4. XTANDI [Suspect]
     Active Substance: ENZALUTAMIDE
     Indication: PROSTATE CANCER METASTATIC
     Route: 048
     Dates: start: 20170530
  5. DELTASONE [Concomitant]
     Active Substance: PREDNISONE
     Route: 065
  6. ZOLADEX [Concomitant]
     Active Substance: GOSERELIN ACETATE
     Indication: PROSTATE CANCER METASTATIC
     Dosage: 10.8 MG, UNKNOWN FREQ. (ONCE IN 3 MONTHS
     Route: 058
     Dates: start: 20161101
  7. LIPITOR [Concomitant]
     Active Substance: ATORVASTATIN CALCIUM
     Indication: PRODUCT USED FOR UNKNOWN INDICATION
     Route: 065
  8. IMDUR [Concomitant]
     Active Substance: ISOSORBIDE MONONITRATE
     Indication: PRODUCT USED FOR UNKNOWN INDICATION
     Route: 048
  9. DELTASONE [Concomitant]
     Active Substance: PREDNISONE
     Route: 065
     Dates: start: 20170620
  10. NITROSTAT [Concomitant]
     Active Substance: NITROGLYCERIN
     Indication: CHEST PAIN
     Dosage: 0.4 MG, AS NEEDED (EVERY 5 MINUTES AS NEEDED)
     Route: 060
  11. FLOMAX [Concomitant]
     Active Substance: TAMSULOSIN HYDROCHLORIDE
     Indication: PRODUCT USED FOR UNKNOWN INDICATION
     Dosage: 0.4 MG, ONCE DAILY
     Route: 048
  12. STOOL SOFTENER (DOCUSATE) [Concomitant]
     Active Substance: DOCUSATE
     Indication: PRODUCT USED FOR UNKNOWN INDICATION
     Dosage: UNK UNK, ONCE DAILY
     Route: 048
  13. DELTASONE [Concomitant]
     Active Substance: PREDNISONE
     Indication: PRODUCT USED FOR UNKNOWN INDICATION
     Route: 065
     Dates: start: 20161118
  14. KLOR?CON [Concomitant]
     Active Substance: POTASSIUM CHLORIDE
     Indication: PRODUCT USED FOR UNKNOWN INDICATION
     Dosage: UNK UNK, ONCE DAILY
     Route: 065
  15. SYNTHROID [Concomitant]
     Active Substance: LEVOTHYROXINE SODIUM
     Indication: PRODUCT USED FOR UNKNOWN INDICATION
     Dosage: UNK UNK, ONCE DAILY (75 MCG)
     Route: 048
  16. CENTRUM SILVER                     /02363801/ [Concomitant]
     Active Substance: MINERALS\VITAMINS
     Indication: PRODUCT USED FOR UNKNOWN INDICATION
     Dosage: UNK UNK, ONCE DAILY
     Route: 048
  17. DEMADEX [Concomitant]
     Active Substance: TORSEMIDE
     Indication: PRODUCT USED FOR UNKNOWN INDICATION
     Route: 048
  18. XTANDI [Suspect]
     Active Substance: ENZALUTAMIDE
     Indication: PROSTATE CANCER
  19. ELIQUIS [Concomitant]
     Active Substance: APIXABAN
     Indication: PRODUCT USED FOR UNKNOWN INDICATION
     Route: 065

REACTIONS (9)
  - Malignant neoplasm progression [Unknown]
  - Fatigue [Recovering/Resolving]
  - Heart rate irregular [Unknown]
  - Prostatic specific antigen increased [Not Recovered/Not Resolved]
  - Hypoaesthesia [Recovering/Resolving]
  - Muscle atrophy [Unknown]
  - Underdose [Unknown]
  - Pain in extremity [Unknown]
  - Drug ineffective [Not Recovered/Not Resolved]

NARRATIVE: CASE EVENT DATE: 201709
